FAERS Safety Report 10236283 (Version 1)
Quarter: 2014Q1

REPORT INFORMATION
  Report Type: Spontaneous
  Country: US (occurrence: None)
  Receive Date: 20140306
  Receipt Date: 20140306
  Transmission Date: 20141002
  Serious: Yes (Other)
  Sender: FDA-Public Use
  Company Number: 163-21880-13034661

PATIENT
  Age: 64 Year
  Sex: Male
  Weight: 83.46 kg

DRUGS (10)
  1. REVLIMID (LENALIDOMIDE) (25 MILLIGRAM, CAPSULES) [Suspect]
     Indication: PLASMA CELL MYELOMA
     Route: 048
     Dates: start: 20101201
  2. B COMPLETE (B COMPLETE) (TABLETS) [Concomitant]
  3. CALCIUM CITRATE WITH VITAMIN D (CALCIUM CITRATE W/COLECALCIFEROL) (UNKNOWN) [Concomitant]
  4. CYMBALTA [Concomitant]
  5. FONDAPARINUX SODIUM (FONDAPARINUX SODIUM) (UNKNOWN) [Concomitant]
  6. MAGNESIUM (MAGNESIUM) (300 MILLIGRAM, CAPSULES) [Concomitant]
  7. TRICOR (FENOFIBRATE) (48 MILLIGRAM, TABLETS) [Concomitant]
  8. VALTREX (VALACICLOVIR HYDROCHLORIDE) (500 MILLIGRAM, TABLETS) [Concomitant]
  9. VITAMIN B COMPLEX (B-KOMPLEX ^LECIVA^) (UNKNOWN) [Concomitant]
  10. ZOMETA (ZOLEDRONIC ACID) (INJECTION) [Concomitant]

REACTIONS (1)
  - Thrombosis [None]
